FAERS Safety Report 5348572-7 (Version None)
Quarter: 2007Q2

REPORT INFORMATION
  Report Type: 
  Country: None (occurrence: None)
  Receive Date: 20070605
  Receipt Date: 20070525
  Transmission Date: 20071010
  Serious: Yes (Other)
  Sender: FDA-Public Use
  Company Number: 16657

PATIENT
  Age: 64 Year
  Sex: Female

DRUGS (12)
  1. LEUCOVORIN CALCIUM [Suspect]
     Indication: COLON CANCER
     Dates: start: 20070220
  2. LEUCOVORIN CALCIUM [Suspect]
     Indication: NEOPLASM PROPHYLAXIS
     Dates: start: 20070220
  3. LEUCOVORIN CALCIUM [Suspect]
     Indication: COLON CANCER
     Dates: start: 20070306, end: 20070306
  4. LEUCOVORIN CALCIUM [Suspect]
     Indication: NEOPLASM PROPHYLAXIS
     Dates: start: 20070306, end: 20070306
  5. FLUOROURACIL [Suspect]
     Indication: COLON CANCER
     Dates: start: 20070220
  6. FLUOROURACIL [Suspect]
     Indication: NEOPLASM PROPHYLAXIS
     Dates: start: 20070220
  7. FLUOROURACIL [Suspect]
     Indication: COLON CANCER
     Dates: start: 20070306, end: 20070306
  8. FLUOROURACIL [Suspect]
     Indication: NEOPLASM PROPHYLAXIS
     Dates: start: 20070306, end: 20070306
  9. OXALIPLATIN [Suspect]
     Indication: COLON CANCER
     Dates: start: 20070220
  10. OXALIPLATIN [Suspect]
     Indication: NEOPLASM PROPHYLAXIS
     Dates: start: 20070220
  11. OXALIPLATIN [Suspect]
     Indication: COLON CANCER
     Dates: start: 20070306, end: 20070306
  12. OXALIPLATIN [Suspect]
     Indication: NEOPLASM PROPHYLAXIS
     Dates: start: 20070306, end: 20070306

REACTIONS (12)
  - DYSARTHRIA [None]
  - DYSPHAGIA [None]
  - DYSPHASIA [None]
  - EYE MOVEMENT DISORDER [None]
  - FEELING JITTERY [None]
  - HYPOAESTHESIA FACIAL [None]
  - HYPOAESTHESIA ORAL [None]
  - NERVE INJURY [None]
  - PHARYNGEAL HYPOAESTHESIA [None]
  - TEMPERATURE INTOLERANCE [None]
  - THROAT TIGHTNESS [None]
  - VISION BLURRED [None]
